FAERS Safety Report 12394855 (Version 3)
Quarter: 2016Q4

REPORT INFORMATION
  Report Type: Spontaneous
  Country: JP (occurrence: JP)
  Receive Date: 20160523
  Receipt Date: 20161018
  Transmission Date: 20170207
  Serious: Yes (Death, Life-Threatening, Disabling, Other)
  Sender: FDA-Public Use
  Company Number: JP-ELI_LILLY_AND_COMPANY-JP201605007048

PATIENT
  Age: 58 Year
  Sex: Male
  Weight: 52.9 kg

DRUGS (7)
  1. PACLITAXEL. [Suspect]
     Active Substance: PACLITAXEL
     Indication: GASTRIC CANCER STAGE IV
     Dosage: 120 MG, OTHER
     Route: 042
     Dates: start: 20160418, end: 20160418
  2. LOXOPROFEN [Concomitant]
     Active Substance: LOXOPROFEN
     Indication: ABDOMINAL PAIN
     Dosage: 60 MG, TID
     Route: 048
     Dates: start: 20160411
  3. RABEPRAZOLE [Concomitant]
     Active Substance: RABEPRAZOLE
     Dosage: UNK
     Route: 048
     Dates: start: 20151125
  4. CYRAMZA [Suspect]
     Active Substance: RAMUCIRUMAB
     Indication: GASTRIC CANCER STAGE IV
     Dosage: 450 MG, OTHER
     Route: 042
     Dates: start: 20160418, end: 20160418
  5. MAXIPIME [Concomitant]
     Active Substance: CEFEPIME HYDROCHLORIDE
     Indication: DEHYDRATION
     Dosage: UNK
     Route: 065
     Dates: start: 20160411, end: 20160414
  6. MAXIPIME [Concomitant]
     Active Substance: CEFEPIME HYDROCHLORIDE
     Indication: INFECTION
  7. IRINOTECAN [Concomitant]
     Active Substance: IRINOTECAN
     Indication: GASTRIC CANCER STAGE IV
     Dosage: 80 MG, UNK
     Route: 042

REACTIONS (9)
  - Seizure [Recovered/Resolved]
  - Hypertension [Recovered/Resolved]
  - Liver disorder [Recovered/Resolved]
  - Nausea [Recovering/Resolving]
  - Malignant neoplasm progression [Fatal]
  - Neutrophil count decreased [Recovered/Resolved]
  - Decreased appetite [Recovering/Resolving]
  - Visual impairment [Recovered/Resolved]
  - Renal disorder [Not Recovered/Not Resolved]

NARRATIVE: CASE EVENT DATE: 2016
